FAERS Safety Report 9748631 (Version 1)
Quarter: 2013Q4

REPORT INFORMATION
  Report Type: Spontaneous
  Country: US (occurrence: US)
  Receive Date: 20131212
  Receipt Date: 20131212
  Transmission Date: 20140711
  Serious: Yes (Other)
  Sender: FDA-Public Use
  Company Number: US-ASTELLAS-2013US012721

PATIENT
  Age: 42 Year
  Sex: Female

DRUGS (7)
  1. PROGRAF [Suspect]
     Indication: RENAL TRANSPLANT
     Dosage: 6 MG, BID
     Route: 048
     Dates: start: 20101005
  2. MYFORTIC [Concomitant]
     Indication: RENAL TRANSPLANT
     Dosage: 360 MG, BID
     Route: 048
     Dates: start: 20101005
  3. PREDNISONE [Concomitant]
     Indication: IMMUNOSUPPRESSION
     Dosage: 5 MG, UID/QD
     Route: 048
     Dates: start: 20101005
  4. ZOFRAN                             /00955302/ [Concomitant]
     Indication: PROPHYLAXIS OF NAUSEA AND VOMITING
     Dosage: UNK
     Route: 065
  5. LASIX                              /00032602/ [Concomitant]
     Indication: SWELLING
     Dosage: UNK
     Route: 065
  6. LISINOPRIL [Concomitant]
     Indication: PROTEIN TOTAL
     Dosage: UNK
     Route: 065
  7. SIMVASTATIN [Concomitant]
     Indication: BLOOD CHOLESTEROL
     Dosage: UNK
     Route: 065

REACTIONS (5)
  - Drug ineffective [Unknown]
  - Protein total increased [Unknown]
  - Cardiac disorder [Unknown]
  - Blood creatinine increased [Unknown]
  - Kidney transplant rejection [Unknown]
